FAERS Safety Report 15433567 (Version 1)
Quarter: 2018Q3

REPORT INFORMATION
  Report Type: Spontaneous
  Country: US (occurrence: US)
  Receive Date: 20180921
  Receipt Date: 20180921
  Transmission Date: 20181010
  Serious: Yes (Life-Threatening, Hospitalization)
  Sender: FDA-Public Use
  Company Number: None

PATIENT
  Age: 50 Year
  Sex: Male

DRUGS (2)
  1. OXALIPLATIN. [Suspect]
     Active Substance: OXALIPLATIN
     Indication: COLON CANCER METASTATIC
  2. LEUCOVORIN. [Suspect]
     Active Substance: LEUCOVORIN

REACTIONS (6)
  - Bundle branch block [None]
  - Metastases to liver [None]
  - Atrial fibrillation [None]
  - Malignant neoplasm progression [None]
  - Cardiac arrest [None]
  - Electrocardiogram QT prolonged [None]

NARRATIVE: CASE EVENT DATE: 20171023
